FAERS Safety Report 25664474 (Version 1)
Quarter: 2025Q3

REPORT INFORMATION
  Report Type: Spontaneous
  Country: US (occurrence: US)
  Receive Date: 20250811
  Receipt Date: 20250811
  Transmission Date: 20251020
  Serious: No
  Sender: Kenvue
  Company Number: US-KENVUE-20250708300

PATIENT
  Sex: Male

DRUGS (8)
  1. TYLENOL [Suspect]
     Active Substance: ACETAMINOPHEN
     Indication: Headache
     Route: 065
     Dates: start: 2025
  2. TREPROSTINIL [Concomitant]
     Active Substance: TREPROSTINIL
     Indication: Pulmonary arterial hypertension
     Dosage: 48 MICROGRAM, FOUR TIME A DAY
     Dates: end: 20250502
  3. TREPROSTINIL [Concomitant]
     Active Substance: TREPROSTINIL
     Dosage: 16 MICROGRAM, FOUR TIME A DAY
     Dates: start: 20250502, end: 20250510
  4. TREPROSTINIL [Concomitant]
     Active Substance: TREPROSTINIL
     Dates: start: 202504
  5. TYVASO DPI [Concomitant]
     Active Substance: TREPROSTINIL
     Indication: Pulmonary arterial hypertension
     Dates: start: 202504
  6. TYVASO DPI [Concomitant]
     Active Substance: TREPROSTINIL
     Dates: start: 202504
  7. TYVASO DPI [Concomitant]
     Active Substance: TREPROSTINIL
     Dosage: 16 MICROGRAM, FOUR TIME A DAY
     Dates: start: 20250502, end: 20250510
  8. OXYGEN [Concomitant]
     Active Substance: OXYGEN
     Indication: Product used for unknown indication
     Route: 065

REACTIONS (1)
  - Therapeutic product effect incomplete [Unknown]
